FAERS Safety Report 9516132 (Version 1)
Quarter: 2013Q3

REPORT INFORMATION
  Report Type: Spontaneous
  Country: FR (occurrence: FR)
  Receive Date: 20130911
  Receipt Date: 20130911
  Transmission Date: 20140515
  Serious: Yes (Hospitalization)
  Sender: FDA-Public Use
  Company Number: FR-SANOFI-AVENTIS-2013SA090118

PATIENT
  Age: 87 Year
  Sex: Male

DRUGS (9)
  1. CORDARONE [Suspect]
     Indication: ATRIAL FIBRILLATION
     Route: 048
     Dates: end: 20120803
  2. LASILIX FAIBLE [Suspect]
     Indication: PRODUCT USED FOR UNKNOWN INDICATION
     Route: 048
     Dates: end: 20120803
  3. DIGOXINE NATIVELLE [Suspect]
     Indication: ATRIAL FIBRILLATION
     Dosage: STRENGTH: 0.25 MG
     Route: 048
     Dates: start: 201204, end: 20120803
  4. HYTACAND [Suspect]
     Indication: HYPERTENSION
     Route: 048
     Dates: end: 20120803
  5. DAFALGAN [Concomitant]
     Route: 048
  6. INEXIUM [Concomitant]
     Route: 048
  7. TADENAN [Concomitant]
     Route: 048
  8. XATRAL [Concomitant]
     Route: 048
  9. KARDEGIC [Concomitant]
     Route: 048

REACTIONS (4)
  - Cardioactive drug level increased [Recovered/Resolved]
  - Syncope [Recovered/Resolved]
  - Loss of consciousness [Recovered/Resolved]
  - Sinus bradycardia [Recovered/Resolved]
